FAERS Safety Report 10178242 (Version 1)
Quarter: 2014Q2

REPORT INFORMATION
  Report Type: Spontaneous
  Country: US (occurrence: None)
  Receive Date: 20140516
  Receipt Date: 20140516
  Transmission Date: 20141212
  Serious: Yes (Hospitalization, Disabling)
  Sender: FDA-Public Use
  Company Number: None

PATIENT
  Age: 58 Year
  Sex: Female
  Weight: 89.81 kg

DRUGS (4)
  1. CIPROFLOXACN [Suspect]
     Indication: PYELONEPHRITIS
     Route: 048
     Dates: start: 20140419, end: 20140419
  2. LISINOPRIL [Concomitant]
  3. LEVOTHYROXINE [Concomitant]
  4. B12 [Concomitant]

REACTIONS (10)
  - Pain in extremity [None]
  - Myalgia [None]
  - Arthropathy [None]
  - Hypoaesthesia [None]
  - Drug hypersensitivity [None]
  - Asthenia [None]
  - Paraesthesia [None]
  - Insomnia [None]
  - Paranoia [None]
  - Pain [None]
